FAERS Safety Report 9997663 (Version 1)
Quarter: 2014Q1

REPORT INFORMATION
  Report Type: Spontaneous
  Country: US (occurrence: US)
  Receive Date: 20140311
  Receipt Date: 20140311
  Transmission Date: 20141002
  Serious: No
  Sender: FDA-Public Use
  Company Number: US-PFIZER INC-2014066096

PATIENT
  Age: 47 Year
  Sex: Female

DRUGS (4)
  1. ADVIL COLD AND SINUS [Suspect]
     Indication: NASOPHARYNGITIS
     Dosage: ONE TABLET, EVERY 4-6 HOURS
     Route: 048
  2. ADVIL COLD AND SINUS [Suspect]
     Indication: SINUS HEADACHE
  3. ADVIL COLD AND SINUS [Suspect]
     Indication: NASAL CONGESTION
  4. CLARITIN [Concomitant]
     Indication: ANTIALLERGIC THERAPY
     Dosage: 10 MG, DAILY

REACTIONS (1)
  - Drug effect incomplete [Unknown]
